FAERS Safety Report 5513752-4 (Version None)
Quarter: 2007Q4

REPORT INFORMATION
  Report Type: 
  Country: None (occurrence: None)
  Receive Date: 20071113
  Receipt Date: 20071105
  Transmission Date: 20080405
  Serious: Yes (Death, Other)
  Sender: FDA-Public Use
  Company Number: PHBS2007US18607

PATIENT
  Age: 33 Year
  Sex: Female

DRUGS (2)
  1. CYCLOSPORINE [Suspect]
     Indication: LIVER TRANSPLANT
     Route: 065
  2. PREDNISONE [Concomitant]
     Indication: LIVER TRANSPLANT

REACTIONS (10)
  - ACUTE RESPIRATORY DISTRESS SYNDROME [None]
  - BLASTOMYCOSIS [None]
  - COUGH [None]
  - DYSPNOEA [None]
  - ESCHERICHIA INFECTION [None]
  - LIVER ABSCESS [None]
  - PNEUMONIA BLASTOMYCES [None]
  - PULMONARY GRANULOMA [None]
  - PYREXIA [None]
  - SKIN ULCER [None]
